FAERS Safety Report 19814670 (Version 1)
Quarter: 2021Q3

REPORT INFORMATION
  Report Type: Spontaneous
  Country: SE (occurrence: SE)
  Receive Date: 20210909
  Receipt Date: 20210909
  Transmission Date: 20211014
  Serious: Yes (Congenital Anomaly)
  Sender: FDA-Public Use
  Company Number: SE-MYLANLABS-2021M1058970

PATIENT

DRUGS (1)
  1. FLUOXETINE [Suspect]
     Active Substance: FLUOXETINE HYDROCHLORIDE
     Indication: DEPRESSION
     Dosage: DOSAGE 40
     Dates: start: 20171105, end: 20210304

REACTIONS (4)
  - Heart disease congenital [Unknown]
  - Vascular malformation [Unknown]
  - Foetal exposure during pregnancy [Unknown]
  - Exomphalos [Unknown]

NARRATIVE: CASE EVENT DATE: 20210302
